FAERS Safety Report 4300540-X (Version None)
Quarter: 2004Q1

REPORT INFORMATION
  Report Type: 
  Country: None (occurrence: None)
  Receive Date: 20040220
  Receipt Date: 20040213
  Transmission Date: 20041129
  Serious: Yes (Other)
  Sender: FDA-Public Use
  Company Number: PHBS2004DK02324

PATIENT
  Age: 5 Year
  Sex: Male

DRUGS (1)
  1. RITALIN [Suspect]
     Indication: ATTENTION DEFICIT/HYPERACTIVITY DISORDER
     Route: 048
     Dates: start: 20031201, end: 20031228

REACTIONS (3)
  - ANXIETY [None]
  - CONFUSIONAL STATE [None]
  - EYE MOVEMENT DISORDER [None]
